FAERS Safety Report 12407134 (Version 3)
Quarter: 2016Q3

REPORT INFORMATION
  Report Type: Spontaneous
  Country: US (occurrence: US)
  Receive Date: 20160526
  Receipt Date: 20160808
  Transmission Date: 20161109
  Serious: Yes (Hospitalization)
  Sender: FDA-Public Use
  Company Number: US-PFIZER INC-2016260769

PATIENT
  Age: 64 Year
  Sex: Female

DRUGS (6)
  1. LETROZOLE. [Suspect]
     Active Substance: LETROZOLE
     Dosage: UNK, UNK (2.5)
     Dates: start: 201601, end: 201605
  2. ADDERALL [Concomitant]
     Active Substance: AMPHETAMINE ASPARTATE\AMPHETAMINE SULFATE\DEXTROAMPHETAMINE SACCHARATE\DEXTROAMPHETAMINE SULFATE
     Dosage: 30 MG, UNK
  3. IBRANCE [Suspect]
     Active Substance: PALBOCICLIB
     Dosage: 125 MG, UNK
     Dates: start: 201601
  4. FEMARA [Suspect]
     Active Substance: LETROZOLE
     Dosage: UNK, UNK (2.5)
     Dates: start: 201605
  5. XANAX [Concomitant]
     Active Substance: ALPRAZOLAM
     Dosage: 1 MG, UNK
  6. ZOMETA [Concomitant]
     Active Substance: ZOLEDRONIC ACID
     Dosage: UNK
     Dates: start: 201501

REACTIONS (7)
  - Lung disorder [Unknown]
  - Headache [Unknown]
  - Pyrexia [Unknown]
  - Diarrhoea [Unknown]
  - Fatigue [Unknown]
  - Muscle spasms [Unknown]
  - Chills [Unknown]
